FAERS Safety Report 6432068-5 (Version None)
Quarter: 2009Q4

REPORT INFORMATION
  Report Type: 
  Country: None (occurrence: None)
  Receive Date: 20091109
  Receipt Date: 20091022
  Transmission Date: 20100525
  Serious: No
  Sender: FDA-Public Use
  Company Number: US-ROCHE-664850

PATIENT
  Age: 46 Year
  Sex: Female
  Weight: 77.1 kg

DRUGS (3)
  1. TAMIFLU [Suspect]
     Indication: PROPHYLAXIS
     Route: 048
     Dates: start: 20091020, end: 20091030
  2. ZOFRAN [Concomitant]
     Route: 048
  3. PROTONIX [Concomitant]
     Route: 048

REACTIONS (2)
  - NO ADVERSE EVENT [None]
  - PREGNANCY [None]
